FAERS Safety Report 4551126-3 (Version None)
Quarter: 2005Q1

REPORT INFORMATION
  Report Type: 
  Country: None (occurrence: None)
  Receive Date: 20050107
  Receipt Date: 20041230
  Transmission Date: 20050727
  Serious: Yes (Other)
  Sender: FDA-Public Use
  Company Number: S04-USA-08048-01

PATIENT
  Age: 42 Year
  Sex: Male

DRUGS (2)
  1. LEXAPRO [Suspect]
     Indication: ANXIETY
  2. LEXAPRO [Suspect]
     Indication: DEPRESSION

REACTIONS (5)
  - AGITATION [None]
  - ANXIETY [None]
  - HALLUCINATION, AUDITORY [None]
  - MURDER [None]
  - NERVOUSNESS [None]
